FAERS Safety Report 25586513 (Version 1)
Quarter: 2025Q3

REPORT INFORMATION
  Report Type: Spontaneous
  Country: US (occurrence: US)
  Receive Date: 20250721
  Receipt Date: 20250721
  Transmission Date: 20251020
  Serious: Yes (Other)
  Sender: ELI LILLY AND COMPANY
  Company Number: US-ELI_LILLY_AND_COMPANY-US202507008910

PATIENT
  Age: 71 Year
  Sex: Female

DRUGS (3)
  1. ZEPBOUND [Suspect]
     Active Substance: TIRZEPATIDE
     Indication: Weight control
     Route: 065
  2. ZEPBOUND [Suspect]
     Active Substance: TIRZEPATIDE
     Indication: Weight control
     Route: 065
     Dates: start: 20250625
  3. IBUPROFEN IB [Suspect]
     Active Substance: IBUPROFEN
     Indication: Upper limb fracture
     Route: 065

REACTIONS (7)
  - Intestinal obstruction [Recovering/Resolving]
  - Upper limb fracture [Unknown]
  - Skin fissures [Recovering/Resolving]
  - Dehydration [Recovering/Resolving]
  - Fluid intake reduced [Unknown]
  - Decreased appetite [Unknown]
  - Gastrointestinal pain [Recovering/Resolving]

NARRATIVE: CASE EVENT DATE: 20250601
